FAERS Safety Report 23292948 (Version 1)
Quarter: 2023Q4

REPORT INFORMATION
  Report Type: Spontaneous
  Country: US (occurrence: US)
  Receive Date: 20231213
  Receipt Date: 20231213
  Transmission Date: 20240110
  Serious: Yes (Hospitalization)
  Sender: FDA-Public Use
  Company Number: US-BIOVITRUM-2023-US-020363

PATIENT
  Age: 0 Year
  Sex: Male

DRUGS (1)
  1. SYNAGIS [Suspect]
     Active Substance: PALIVIZUMAB
     Indication: Premature baby
     Dosage: 99.90 MG EVERY 28 TO 30 DAYS.
     Route: 030
     Dates: start: 20231102

REACTIONS (2)
  - Influenza virus test positive [Recovering/Resolving]
  - Conjunctivitis [Recovering/Resolving]
